FAERS Safety Report 23376032 (Version 1)
Quarter: 2024Q1

REPORT INFORMATION
  Report Type: Spontaneous
  Country: US (occurrence: US)
  Receive Date: 20240108
  Receipt Date: 20240108
  Transmission Date: 20240409
  Serious: No
  Sender: FDA-Public Use
  Company Number: US-OPELLA-2023OHG021167

PATIENT
  Age: 2 Year
  Sex: Male
  Weight: 16.33 kg

DRUGS (1)
  1. DULCOLAX CHEWY FRUIT BITES CHERRY BERRY [Suspect]
     Active Substance: MAGNESIUM HYDROXIDE
     Route: 065

REACTIONS (2)
  - Accidental exposure to product by child [Unknown]
  - No adverse event [Unknown]
